FAERS Safety Report 16750563 (Version 9)
Quarter: 2020Q4

REPORT INFORMATION
  Report Type: Spontaneous
  Country: US (occurrence: US)
  Receive Date: 20190828
  Receipt Date: 20201112
  Transmission Date: 20210113
  Serious: No
  Sender: FDA-Public Use
  Company Number: US-PFIZER INC-2019163026

PATIENT
  Age: 47 Year
  Sex: Female
  Weight: 79 kg

DRUGS (2)
  1. LYRICA [Suspect]
     Active Substance: PREGABALIN
     Indication: PAIN
     Dosage: 150 MG, 3X/DAY
     Route: 048
  2. LYRICA [Suspect]
     Active Substance: PREGABALIN
     Indication: CANCER PAIN

REACTIONS (5)
  - Withdrawal syndrome [Unknown]
  - Nausea [Unknown]
  - Asthenia [Unknown]
  - Illness [Unknown]
  - Pyrexia [Unknown]
